FAERS Safety Report 25264440 (Version 5)
Quarter: 2025Q4

REPORT INFORMATION
  Report Type: Spontaneous
  Country: GB (occurrence: GB)
  Receive Date: 20250502
  Receipt Date: 20251208
  Transmission Date: 20260118
  Serious: Yes (Disabling, Other)
  Sender: TEVA
  Company Number: GB-Accord-481330

PATIENT
  Age: 68 Year
  Sex: Male
  Weight: 153 kg

DRUGS (38)
  1. PREDNISOLONE [Suspect]
     Active Substance: PREDNISOLONE
     Indication: Giant cell arteritis
     Route: 065
  2. PREDNISOLONE [Suspect]
     Active Substance: PREDNISOLONE
     Indication: Giant cell arteritis
     Route: 065
     Dates: start: 2025, end: 2025
  3. PREDNISOLONE [Suspect]
     Active Substance: PREDNISOLONE
     Indication: Giant cell arteritis
     Dosage: LAST ADMINISTRATION: 2025
     Route: 048
     Dates: start: 20250331
  4. PREDNISOLONE [Suspect]
     Active Substance: PREDNISOLONE
     Indication: Giant cell arteritis
     Dosage: LAST ADMINISTRATION: 2025
     Route: 065
     Dates: start: 202405
  5. PREDNISOLONE [Suspect]
     Active Substance: PREDNISOLONE
     Indication: Giant cell arteritis
     Route: 065
     Dates: start: 2025
  6. PREDNISOLONE [Suspect]
     Active Substance: PREDNISOLONE
     Indication: Giant cell arteritis
     Dosage: 2.5MG, AS PER TAPERING REGIMEN, 56 TABLET
     Route: 065
  7. PREDNISOLONE [Suspect]
     Active Substance: PREDNISOLONE
     Indication: Giant cell arteritis
     Dosage: 28 TABLET, LAST ADMINISTRATION: 2025
     Route: 065
     Dates: start: 20250416
  8. COCODAMOL [Concomitant]
     Active Substance: ACETAMINOPHEN\CODEINE PHOSPHATE
     Indication: Product used for unknown indication
     Dosage: TIME INTERVAL: AS NECESSARY: 30MG/500MG TABLETS, TO BE TAKEN FOUR TIME A DAY, 100 TABLET
     Dates: start: 20251001
  9. FLUOXETINE [Concomitant]
     Active Substance: FLUOXETINE HYDROCHLORIDE
     Indication: Depression
     Route: 048
     Dates: start: 20190115
  10. FLUOXETINE [Concomitant]
     Active Substance: FLUOXETINE HYDROCHLORIDE
     Indication: Depression
     Dosage: 14
     Route: 048
     Dates: start: 20250918
  11. OLANZAPINE [Concomitant]
     Active Substance: OLANZAPINE
     Indication: Schizophrenia
     Dosage: 7
     Route: 048
     Dates: start: 20250918
  12. OLANZAPINE [Concomitant]
     Active Substance: OLANZAPINE
     Indication: Schizophrenia
     Route: 048
     Dates: start: 20190530
  13. OLMESARTAN [Concomitant]
     Active Substance: OLMESARTAN
     Indication: Product used for unknown indication
     Dosage: 7
     Dates: start: 20250918
  14. THIAMINE [Concomitant]
     Active Substance: THIAMINE
     Indication: Product used for unknown indication
     Route: 048
     Dates: start: 20190221
  15. THIAMINE [Concomitant]
     Active Substance: THIAMINE
     Indication: Product used for unknown indication
     Dosage: ONE TO BE TAKEN THREE TIMES A DAY, 21 TABLET
     Route: 048
     Dates: start: 20250918
  16. AMLODIPINE [Concomitant]
     Active Substance: AMLODIPINE BESYLATE
     Indication: Product used for unknown indication
     Dosage: 7 TABLET
     Dates: start: 20250918
  17. AMLODIPINE [Concomitant]
     Active Substance: AMLODIPINE BESYLATE
     Indication: Product used for unknown indication
  18. ASPIRIN [Concomitant]
     Active Substance: ASPIRIN
     Indication: Product used for unknown indication
     Dosage: ONE TO BE TAKEN EACH DAY, 7 TABLET
     Dates: start: 20250918
  19. DAPAGLIFLOZIN [Concomitant]
     Active Substance: DAPAGLIFLOZIN
     Indication: Product used for unknown indication
     Dosage: 7
     Dates: start: 20250918
  20. OMEPRAZOLE [Concomitant]
     Active Substance: OMEPRAZOLE
     Indication: Product used for unknown indication
     Dosage: ONE TO BE TAKEN, 14 CAPSULE
     Dates: start: 20250918
  21. OMEPRAZOLE [Concomitant]
     Active Substance: OMEPRAZOLE
     Indication: Product used for unknown indication
  22. METFORMIN [Concomitant]
     Active Substance: METFORMIN HYDROCHLORIDE
     Indication: Product used for unknown indication
     Dosage: BD
  23. METFORMIN [Concomitant]
     Active Substance: METFORMIN HYDROCHLORIDE
     Indication: Product used for unknown indication
     Dosage: ONE TO BE TAKEN TWICE A DAY, 14 TABLET
     Dates: start: 20250918
  24. ATORVASTATIN [Concomitant]
     Active Substance: ATORVASTATIN
     Indication: Hyperlipidaemia
     Dosage: 7 TABLET
     Route: 048
     Dates: start: 20250918
  25. ATORVASTATIN [Concomitant]
     Active Substance: ATORVASTATIN
     Indication: Hyperlipidaemia
     Route: 048
     Dates: start: 20190221
  26. VITAMIN D NOS [Concomitant]
     Active Substance: CHOLECALCIFEROL\ERGOCALCIFEROL
     Indication: Product used for unknown indication
  27. AMITRIPTYLINE [Concomitant]
     Active Substance: AMITRIPTYLINE
     Indication: Product used for unknown indication
     Dosage: NOCTE
     Dates: start: 20250918
  28. CARBAMAZEPINE [Concomitant]
     Active Substance: CARBAMAZEPINE
     Indication: Product used for unknown indication
     Dosage: ONE TABLET TWICE A DAY, 14 TABLET
     Dates: start: 20250918
  29. CARBAMAZEPINE [Concomitant]
     Active Substance: CARBAMAZEPINE
     Indication: Product used for unknown indication
     Dosage: BD
  30. CALCIUM [Concomitant]
     Active Substance: CALCIUM
     Indication: Product used for unknown indication
  31. COMIRNATY [Concomitant]
     Indication: Product used for unknown indication
     Dosage: 30MICROGRAMS/0.3ML, MULTIDOSE VIALS,  0.3 ML
     Route: 030
     Dates: start: 20241009
  32. PREDNISOLONE [Suspect]
     Active Substance: PREDNISOLONE
     Indication: Giant cell arteritis
     Dosage: ACCORD^S PREDNISOLONE, LAST ADMINISTRATION: 2025
     Route: 065
     Dates: start: 202405
  33. PREDNISOLONE [Suspect]
     Active Substance: PREDNISOLONE
     Indication: Giant cell arteritis
     Dosage: LAST ADMINISTRATION: 2025
     Route: 065
     Dates: start: 2025
  34. PREDNISOLONE [Suspect]
     Active Substance: PREDNISOLONE
     Indication: Giant cell arteritis
     Route: 065
     Dates: start: 2025
  35. PREDNISOLONE [Suspect]
     Active Substance: PREDNISOLONE
     Indication: Giant cell arteritis
     Dosage: LAST ADMINISTRATION: 2025
     Route: 048
     Dates: start: 20250331
  36. PREDNISOLONE [Suspect]
     Active Substance: PREDNISOLONE
     Indication: Giant cell arteritis
     Dosage: 28 TABLET, LAST ADMINISTRATION: 2025
     Route: 065
     Dates: start: 20250416
  37. PREDNISOLONE [Suspect]
     Active Substance: PREDNISOLONE
     Indication: Giant cell arteritis
     Route: 065
  38. PREDNISOLONE [Suspect]
     Active Substance: PREDNISOLONE
     Indication: Giant cell arteritis
     Dosage: 2.5MG, AS PER TAPERING REGIMEN, 56 TABLET
     Route: 065

REACTIONS (18)
  - Malignant melanoma [Recovered/Resolved]
  - Joint swelling [Unknown]
  - Peripheral swelling [Recovering/Resolving]
  - Abnormal weight gain [Unknown]
  - Type 2 diabetes mellitus [Not Recovered/Not Resolved]
  - Withdrawal syndrome [Unknown]
  - Hypertension [Unknown]
  - Cushingoid [Unknown]
  - Schizophrenia [Unknown]
  - Cataract [Not Recovered/Not Resolved]
  - Full blood count decreased [Unknown]
  - Circulatory collapse [Unknown]
  - Osteomyelitis [Unknown]
  - Gait disturbance [Unknown]
  - Dyspnoea [Unknown]
  - Obstructive sleep apnoea syndrome [Unknown]
  - Malignant melanoma [Unknown]
  - Kyphosis [Unknown]

NARRATIVE: CASE EVENT DATE: 20240711
